FAERS Safety Report 9093324 (Version 1)
Quarter: 2013Q1

REPORT INFORMATION
  Report Type: Report from Study
  Country: US (occurrence: US)
  Receive Date: 20130131
  Receipt Date: 20130131
  Transmission Date: 20140127
  Serious: No
  Sender: FDA-Public Use
  Company Number: US-ABBOTT-12P-163-1002885-00

PATIENT
  Age: 45 Year
  Sex: Female

DRUGS (8)
  1. HUMIRA [Suspect]
     Indication: CROHN^S DISEASE
     Dates: start: 20120924
  2. SULFASALAZINE [Concomitant]
     Indication: CROHN^S DISEASE
  3. IBUPROFEN [Concomitant]
     Indication: CROHN^S DISEASE
     Route: 048
  4. IBUPROFEN [Concomitant]
     Indication: INFLAMMATION
  5. TRAMADOL HCL [Concomitant]
     Indication: PRODUCT USED FOR UNKNOWN INDICATION
     Dosage: AM AND PM
     Route: 048
  6. NEXIUM [Concomitant]
     Indication: DYSPEPSIA
     Route: 048
  7. ZYRTEC [Concomitant]
     Indication: SINUSITIS
     Route: 048
  8. ZYRTEC [Concomitant]
     Indication: HYPERSENSITIVITY

REACTIONS (2)
  - Ear infection [Recovered/Resolved]
  - Sinusitis [Recovered/Resolved]
